FAERS Safety Report 23838306 (Version 1)
Quarter: 2024Q2

REPORT INFORMATION
  Report Type: Spontaneous
  Country: US (occurrence: US)
  Receive Date: 20240509
  Receipt Date: 20240509
  Transmission Date: 20240716
  Serious: No
  Sender: FDA-Public Use
  Company Number: US-INTRA-CELLULAR THERAPIES, INC.-2024ICT00183

PATIENT
  Age: 22 Year
  Sex: Female

DRUGS (6)
  1. CAPLYTA [Suspect]
     Active Substance: LUMATEPERONE
     Indication: Bipolar disorder
     Dosage: 42 MG
     Dates: start: 20240110, end: 20240125
  2. CAPLYTA [Suspect]
     Active Substance: LUMATEPERONE
     Dosage: BEING TAPERED OFF
     Dates: start: 20240126
  3. TRAZODONE [Concomitant]
     Active Substance: TRAZODONE HYDROCHLORIDE
     Dosage: 50 MG, 1X/DAY IN THE EVENING
  4. CYANOCOBALAMIN [Concomitant]
     Active Substance: CYANOCOBALAMIN
  5. VITAMINS NOS [Concomitant]
     Active Substance: VITAMINS
  6. UNSPECIFIED BONE SUPPLEMENT [Concomitant]

REACTIONS (2)
  - Bruxism [Unknown]
  - Blepharospasm [Unknown]

NARRATIVE: CASE EVENT DATE: 20240101
